FAERS Safety Report 14963930 (Version 1)
Quarter: 2018Q2

REPORT INFORMATION
  Report Type: Spontaneous
  Country: IE (occurrence: IE)
  Receive Date: 20180601
  Receipt Date: 20180601
  Transmission Date: 20180711
  Serious: Yes (Hospitalization)
  Sender: FDA-Public Use
  Company Number: IE-LANNETT COMPANY, INC.-IE-2018LAN000710

PATIENT
  Age: 83 Year
  Sex: Male

DRUGS (1)
  1. BUPRENORPHINE AND NALOXONE [Suspect]
     Active Substance: BUPRENORPHINE\NALOXONE
     Indication: ISCHAEMIC LIMB PAIN
     Dosage: 10 ?G/HOUR
     Route: 062

REACTIONS (1)
  - Toxicity to various agents [Unknown]
